FAERS Safety Report 8780422 (Version 1)
Quarter: 2012Q4

REPORT INFORMATION
  Report Type: Spontaneous
  Country: AU (occurrence: None)
  Receive Date: 20120830
  Receipt Date: 20120830
  Transmission Date: 20130627
  Serious: Yes (Other)
  Sender: FDA-Public Use
  Company Number: 2012AP002663

PATIENT
  Age: 75 Year
  Sex: Female

DRUGS (5)
  1. TRAMADOL (TRAMADOL) [Suspect]
     Indication: PRODUCT USED FOR UNKNOWN INDICATION
  2. ERGOCALCIFEROL (ERGOCALCIFEROL) [Concomitant]
  3. AMLODIPINE (AMLODIPINE) [Concomitant]
  4. ESTRADIOL (ESTRADIOL) [Concomitant]
  5. MOMETASONE (MOMETASONE) [Concomitant]

REACTIONS (3)
  - Tachycardia [None]
  - Atrial fibrillation [None]
  - Hypokalaemia [None]
